FAERS Safety Report 19685421 (Version 1)
Quarter: 2021Q3

REPORT INFORMATION
  Report Type: Spontaneous
  Country: US (occurrence: US)
  Receive Date: 20210811
  Receipt Date: 20210811
  Transmission Date: 20211014
  Serious: No
  Sender: FDA-Public Use
  Company Number: None

PATIENT
  Age: 85 Year
  Sex: Female
  Weight: 51.3 kg

DRUGS (8)
  1. TRIAMTERENE?HCTZ 75?50MG [Concomitant]
  2. OXYBUTININ [Concomitant]
     Active Substance: OXYBUTYNIN
  3. ALENDRONATE SODIUM 70MG [Concomitant]
     Active Substance: ALENDRONATE SODIUM
  4. CAPECITABINE TABLET [Suspect]
     Active Substance: CAPECITABINE
     Indication: HEPATIC CANCER
     Route: 048
  5. ASPRIN81MG [Concomitant]
  6. AMLODIPINE BESYLATE 2.5MG [Concomitant]
     Active Substance: AMLODIPINE BESYLATE
  7. LOSARTAN POTASSIUM 100MG [Concomitant]
     Active Substance: LOSARTAN POTASSIUM
  8. ATORVASTATIN CALCIUM 10MG [Concomitant]

REACTIONS (2)
  - Lip blister [None]
  - Diarrhoea [None]

NARRATIVE: CASE EVENT DATE: 20210810
